FAERS Safety Report 8539193-3 (Version None)
Quarter: 2012Q3

REPORT INFORMATION
  Report Type: 
  Country: None (occurrence: None)
  Receive Date: 20120716
  Receipt Date: 20120709
  Transmission Date: 20120928
  Serious: Yes (Other)
  Sender: FDA-Public Use
  Company Number: 2012032836

PATIENT
  Age: 28 Year
  Sex: Male

DRUGS (2)
  1. HIZENTRA [Suspect]
     Indication: PRIMARY IMMUNODEFICIENCY SYNDROME
     Dosage: SEE IMAGE
     Route: 058
     Dates: start: 20120322
  2. HIZENTRA [Suspect]

REACTIONS (3)
  - SCAR [None]
  - IMPAIRED HEALING [None]
  - SKIN LESION [None]
